FAERS Safety Report 11176246 (Version 1)
Quarter: 2015Q2

REPORT INFORMATION
  Report Type: Spontaneous
  Country: US (occurrence: US)
  Receive Date: 20150609
  Receipt Date: 20150609
  Transmission Date: 20150821
  Serious: No
  Sender: FDA-Public Use
  Company Number: US-009507513-1505USA010017

PATIENT
  Age: 20 Year
  Sex: Female

DRUGS (1)
  1. NEXPLANON [Suspect]
     Active Substance: ETONOGESTREL
     Indication: CONTRACEPTION
     Dosage: 1 IMPLANT/EVERY 3 YEARS
     Route: 059
     Dates: start: 201312, end: 201503

REACTIONS (2)
  - Vaginal haemorrhage [Recovered/Resolved]
  - Implant site discolouration [Recovered/Resolved]
